FAERS Safety Report 5126513-5 (Version None)
Quarter: 2006Q4

REPORT INFORMATION
  Report Type: 
  Country: None (occurrence: None)
  Receive Date: 20061010
  Receipt Date: 20060928
  Transmission Date: 20070319
  Serious: Yes (Other)
  Sender: FDA-Public Use
  Company Number: 2006118361

PATIENT
  Age: 67 Year
  Sex: Male
  Weight: 82.5547 kg

DRUGS (4)
  1. XALATAN [Suspect]
     Indication: GLAUCOMA
     Dosage: ONE DROP IN EACH EYE (1 IN 1 D), OPHTHALMIC
     Route: 047
     Dates: start: 20010101
  2. ASTELIN [Concomitant]
  3. SYTHROID (LEVOTHYROXINE SODIUM) [Concomitant]
  4. VITAMIN D [Concomitant]

REACTIONS (1)
  - MYALGIA [None]
